FAERS Safety Report 9660970 (Version 2)
Quarter: 2013Q4

REPORT INFORMATION
  Report Type: Report from Study
  Country: DE (occurrence: DE)
  Receive Date: 20131031
  Receipt Date: 20131031
  Transmission Date: 20140711
  Serious: Yes (Hospitalization)
  Sender: FDA-Public Use
  Company Number: DE-ABBVIE-13P-062-1079120-00

PATIENT
  Age: 57 Year
  Sex: Male
  Weight: 87 kg

DRUGS (13)
  1. HUMIRA [Suspect]
     Indication: ANKYLOSING SPONDYLITIS
     Route: 058
     Dates: start: 2011
  2. TILIDINE [Concomitant]
     Indication: PRODUCT USED FOR UNKNOWN INDICATION
     Dates: start: 201301
  3. IBUPROFEN [Concomitant]
     Indication: PRODUCT USED FOR UNKNOWN INDICATION
  4. RAMIPRIL [Concomitant]
     Indication: HYPERTENSION
     Route: 048
  5. AMLODIPIN [Concomitant]
     Indication: HYPERTENSION
  6. DIGIMERCK [Concomitant]
     Indication: ATRIAL FIBRILLATION
     Route: 048
  7. LEVOTHYROXINE [Concomitant]
     Indication: HYPOTHYROIDISM
  8. CARVEDILOL [Concomitant]
     Indication: HYPERTENSION
  9. ACETYLSALICYLIC ACID [Concomitant]
     Indication: CORONARY ARTERY DISEASE
  10. ACETYLSALICYLIC ACID [Concomitant]
     Indication: STENT PLACEMENT
  11. ESIDRIX [Concomitant]
     Indication: HYPERTENSION
     Dates: start: 201202
  12. REMERGIL [Concomitant]
     Indication: DEPRESSION
  13. MARCUMAR [Concomitant]
     Indication: ATRIAL FIBRILLATION

REACTIONS (8)
  - Coronary artery disease [Recovered/Resolved]
  - Dyspnoea exertional [Recovered/Resolved]
  - Coronary artery stenosis [Recovered/Resolved]
  - Coronary artery disease [Unknown]
  - Cardiac failure [Not Recovered/Not Resolved]
  - Paraesthesia [Not Recovered/Not Resolved]
  - Hypoaesthesia [Not Recovered/Not Resolved]
  - Coronary artery disease [Not Recovered/Not Resolved]
